FAERS Safety Report 25228032 (Version 1)
Quarter: 2025Q2

REPORT INFORMATION
  Report Type: Spontaneous
  Country: US (occurrence: US)
  Receive Date: 20250423
  Receipt Date: 20250423
  Transmission Date: 20250717
  Serious: No
  Sender: AUROBINDO
  Company Number: US-AUROBINDO-AUR-APL-2024-017060

PATIENT
  Age: 70 Year
  Sex: Male

DRUGS (1)
  1. SPIRONOLACTONE [Suspect]
     Active Substance: SPIRONOLACTONE
     Indication: Blood pressure measurement
     Route: 065
     Dates: start: 20240401

REACTIONS (2)
  - Product taste abnormal [Unknown]
  - Product after taste [Unknown]

NARRATIVE: CASE EVENT DATE: 20240401
